FAERS Safety Report 15333557 (Version 3)
Quarter: 2018Q4

REPORT INFORMATION
  Report Type: Spontaneous
  Country: GB (occurrence: GB)
  Receive Date: 20180830
  Receipt Date: 20181226
  Transmission Date: 20190204
  Serious: Yes (Life-Threatening, Hospitalization, Disabling, Congenital Anomaly)
  Sender: FDA-Public Use
  Company Number: GB-TORRENT-00017210

PATIENT
  Age: 8 Day
  Sex: Male
  Weight: 1 kg

DRUGS (4)
  1. MAGNESIUM SULFATE. [Concomitant]
     Active Substance: MAGNESIUM SULFATE
     Indication: PRODUCT USED FOR UNKNOWN INDICATION
     Dosage: UNK
  2. FOLIC ACID. [Concomitant]
     Active Substance: FOLIC ACID
     Indication: PRODUCT USED FOR UNKNOWN INDICATION
     Dosage: UNK
     Route: 064
  3. CAFFEINE CITRATE. [Concomitant]
     Active Substance: CAFFEINE CITRATE
     Indication: APNOEA
     Dosage: UNK
  4. LAMOTRIGINE. [Suspect]
     Active Substance: LAMOTRIGINE
     Indication: EPILEPSY
     Route: 064

REACTIONS (16)
  - Apnoea [Unknown]
  - Atrial septal defect [Not Recovered/Not Resolved]
  - Intraventricular haemorrhage neonatal [Not Recovered/Not Resolved]
  - Tachycardia foetal [Not Recovered/Not Resolved]
  - Cyanosis [Unknown]
  - Bone metabolism disorder [Unknown]
  - Foetal exposure during pregnancy [Unknown]
  - Ventricular septal defect [Not Recovered/Not Resolved]
  - Premature baby [Unknown]
  - Patent ductus arteriosus [Not Recovered/Not Resolved]
  - Supraventricular tachycardia [Recovered/Resolved]
  - Sepsis [Unknown]
  - Cerebral ventricle dilatation [Unknown]
  - Neonatal respiratory distress syndrome [Unknown]
  - Anaemia [Unknown]
  - Transverse presentation [Unknown]
